FAERS Safety Report 4886749-5 (Version None)
Quarter: 2006Q1

REPORT INFORMATION
  Report Type: 
  Country: None (occurrence: None)
  Receive Date: 20060120
  Receipt Date: 20060109
  Transmission Date: 20060701
  Serious: Yes (Hospitalization)
  Sender: FDA-Public Use
  Company Number: AU-ROCHE-431232

PATIENT
  Age: 95 Year
  Sex: Male
  Weight: 80 kg

DRUGS (1)
  1. NAPROSYN CR [Suspect]
     Indication: OSTEOARTHRITIS
     Route: 048
     Dates: start: 20041102, end: 20041124

REACTIONS (3)
  - ASTHENIA [None]
  - DUODENAL ULCER [None]
  - FAECES DISCOLOURED [None]
